FAERS Safety Report 17484284 (Version 1)
Quarter: 2020Q1

REPORT INFORMATION
  Report Type: Spontaneous
  Country: US (occurrence: US)
  Receive Date: 20200302
  Receipt Date: 20200302
  Transmission Date: 20200409
  Serious: Yes (Hospitalization)
  Sender: FDA-Public Use
  Company Number: US-PFIZER INC-2020092159

PATIENT
  Age: 68 Year
  Sex: Female

DRUGS (1)
  1. AROMASIN [Suspect]
     Active Substance: EXEMESTANE
     Indication: INVASIVE BREAST CARCINOMA
     Dosage: UNK

REACTIONS (4)
  - Neoplasm recurrence [Unknown]
  - Cholecystitis [Unknown]
  - Abdominal discomfort [Unknown]
  - Pruritus [Unknown]

NARRATIVE: CASE EVENT DATE: 201805
